FAERS Safety Report 20124772 (Version 1)
Quarter: 2021Q4

REPORT INFORMATION
  Report Type: Spontaneous
  Country: US (occurrence: US)
  Receive Date: 20211129
  Receipt Date: 20211129
  Transmission Date: 20220304
  Serious: No
  Sender: FDA-Public Use
  Company Number: US-AUROBINDO-AUR-APL-2020-064383

PATIENT
  Age: 68 Year
  Sex: Male
  Weight: 52 kg

DRUGS (1)
  1. GABAPENTIN [Suspect]
     Active Substance: GABAPENTIN
     Indication: Neuropathy peripheral
     Dosage: 600 MILLIGRAM, DAILY
     Route: 065
     Dates: start: 2015

REACTIONS (1)
  - Abdominal pain upper [Recovered/Resolved]
